FAERS Safety Report 10412460 (Version 1)
Quarter: 2014Q3

REPORT INFORMATION
  Report Type: Spontaneous
  Country: US (occurrence: US)
  Receive Date: 20140827
  Receipt Date: 20140827
  Transmission Date: 20150326
  Serious: No
  Sender: FDA-Public Use
  Company Number: US-009507513-1408USA014143

PATIENT
  Sex: Female

DRUGS (1)
  1. LOTRIMIN AF ATHLETE^S FOOT DEODORANT SPRAY POWDER [Suspect]
     Active Substance: MICONAZOLE NITRATE
     Indication: SKIN EXFOLIATION
     Dosage: UNK, UNKNOWN
     Route: 061
     Dates: start: 201407

REACTIONS (3)
  - Drug ineffective for unapproved indication [Unknown]
  - Drug administered at inappropriate site [Unknown]
  - Off label use [Unknown]
